FAERS Safety Report 4938730-5 (Version None)
Quarter: 2006Q1

REPORT INFORMATION
  Report Type: 
  Country: None (occurrence: None)
  Receive Date: 20060127
  Receipt Date: 20051220
  Transmission Date: 20060701
  Serious: Yes (Other)
  Sender: FDA-Public Use
  Company Number: 2005152847

PATIENT
  Age: 67 Year
  Sex: Female
  Weight: 58.0604 kg

DRUGS (4)
  1. LYRICA [Suspect]
     Indication: NERVE INJURY
     Dosage: SEE IMAGE
     Route: 048
     Dates: start: 20051102, end: 20051106
  2. LYRICA [Suspect]
     Indication: NEUROPATHY
     Dosage: SEE IMAGE
     Route: 048
     Dates: start: 20051102, end: 20051106
  3. LYRICA [Suspect]
     Indication: NERVE INJURY
     Dosage: SEE IMAGE
     Route: 048
     Dates: start: 20051102, end: 20051106
  4. LYRICA [Suspect]
     Indication: NEUROPATHY
     Dosage: SEE IMAGE
     Route: 048
     Dates: start: 20051102, end: 20051106

REACTIONS (6)
  - ABDOMINAL PAIN UPPER [None]
  - BLADDER PAIN [None]
  - BLOOD PRESSURE INCREASED [None]
  - DIZZINESS [None]
  - HEADACHE [None]
  - SOMNOLENCE [None]
